FAERS Safety Report 8298314-0 (Version None)
Quarter: 2012Q2

REPORT INFORMATION
  Report Type: 
  Country: None (occurrence: None)
  Receive Date: 20120419
  Receipt Date: 20120418
  Transmission Date: 20120825
  Serious: Yes (Other)
  Sender: FDA-Public Use
  Company Number: PHFR2011IE06022

PATIENT
  Sex: Female

DRUGS (4)
  1. CLOZARIL [Suspect]
     Indication: SCHIZOPHRENIA
     Dosage: 375 MG, (75 MG IN MORNING AND 300 MG IN EVENING)
     Route: 048
     Dates: start: 20010326
  2. PANTOPRAZOLE [Concomitant]
     Dosage: 100 UKN, BID
     Dates: start: 20090101
  3. XENICAL [Concomitant]
     Dosage: 0.25 UKN, UNK
     Route: 048
     Dates: start: 20090101
  4. LAMICTAL [Concomitant]
     Dosage: 100 UKN, BID
     Dates: start: 20090101

REACTIONS (2)
  - HYPERTHYROIDISM [None]
  - AUTOIMMUNE THYROIDITIS [None]
